FAERS Safety Report 7243788-7 (Version None)
Quarter: 2011Q1

REPORT INFORMATION
  Report Type: 
  Country: None (occurrence: None)
  Receive Date: 20110125
  Receipt Date: 20110118
  Transmission Date: 20110831
  Serious: No
  Sender: FDA-Public Use
  Company Number: US-PFIZER INC-2011013999

PATIENT
  Age: 55 Year
  Sex: Female
  Weight: 56.236 kg

DRUGS (1)
  1. ADVIL COLD AND SINUS [Suspect]
     Indication: SINUS HEADACHE
     Dosage: 1 CAPLET, SINGLE
     Route: 048
     Dates: start: 20110116, end: 20110116

REACTIONS (4)
  - EPISTAXIS [None]
  - DIZZINESS [None]
  - PRODUCT BLISTER PACKAGING ISSUE [None]
  - NAUSEA [None]
